FAERS Safety Report 11723926 (Version 2)
Quarter: 2015Q4

REPORT INFORMATION
  Report Type: Spontaneous
  Country: US (occurrence: US)
  Receive Date: 20151111
  Receipt Date: 20151222
  Transmission Date: 20160304
  Serious: Yes (Hospitalization, Other)
  Sender: FDA-Public Use
  Company Number: US-SMITH AND NEPHEW, INC-2015SMT00499

PATIENT
  Age: 60 Year
  Sex: Female
  Weight: 45.81 kg

DRUGS (3)
  1. PREDNISONE. [Concomitant]
     Active Substance: PREDNISONE
     Dosage: UNK
  2. REGRANEX [Suspect]
     Active Substance: BECAPLERMIN
     Indication: WOUND
     Dosage: UNK UNK, 1X/DAY
     Route: 061
     Dates: start: 201509, end: 20151001
  3. OTHER ORAL MEDICATIONS (UNKNOWN) [Concomitant]

REACTIONS (4)
  - Skin graft [Not Recovered/Not Resolved]
  - Off label use [Unknown]
  - Wound complication [Recovered/Resolved]
  - Skin graft failure [Unknown]

NARRATIVE: CASE EVENT DATE: 201509
